FAERS Safety Report 8012374-3 (Version None)
Quarter: 2011Q4

REPORT INFORMATION
  Report Type: 
  Country: None (occurrence: None)
  Receive Date: 20111228
  Receipt Date: 20111219
  Transmission Date: 20120403
  Serious: Yes (Other)
  Sender: FDA-Public Use
  Company Number: FR-ASTRAZENECA-2011SE76886

PATIENT
  Age: 64 Year
  Sex: Female

DRUGS (5)
  1. SPIRIVA [Concomitant]
  2. PREDNISOLONE [Concomitant]
     Dosage: AS REQUIRED
  3. SYMBICORT [Suspect]
     Indication: CHRONIC OBSTRUCTIVE PULMONARY DISEASE
     Dosage: 360/9 UG PER DOSE, TWO INHALATIONS TWICE PER DAY
     Route: 055
     Dates: start: 20080501, end: 20111101
  4. EUTHYRAL [Concomitant]
  5. CALCIUM CARBONATE [Concomitant]

REACTIONS (3)
  - ECCHYMOSIS [None]
  - SKIN ATROPHY [None]
  - ADRENAL INSUFFICIENCY [None]
